FAERS Safety Report 8947118 (Version 1)
Quarter: 2012Q4

REPORT INFORMATION
  Report Type: 
  Country: US (occurrence: US)
  Receive Date: 20121205
  Receipt Date: 20121205
  Transmission Date: 20130627
  Serious: Yes (Hospitalization, Other)
  Sender: FDA-Public Use
  Company Number: US-CELGENEUS-163-21880-12061302

PATIENT
  Sex: Male

DRUGS (6)
  1. REVLIMID [Suspect]
     Indication: MULTIPLE MYELOMA
     Dosage: 25 Milligram
     Route: 048
     Dates: start: 20120513, end: 20120603
  2. REVLIMID [Suspect]
     Dosage: 15 Milligram
     Route: 048
     Dates: start: 201207
  3. REVLIMID [Suspect]
     Dosage: 15 Milligram
     Route: 048
     Dates: start: 20120912
  4. BLOOD [Concomitant]
     Indication: DRUG USE FOR UNKNOWN INDICATION
     Dosage: 6 pints
     Route: 065
  5. PRILOSEC [Concomitant]
     Indication: DRUG USE FOR UNKNOWN INDICATION
     Route: 065
  6. ASA [Concomitant]
     Indication: DRUG USE FOR UNKNOWN INDICATION
     Route: 065

REACTIONS (5)
  - Haemorrhage [Unknown]
  - Fall [Not Recovered/Not Resolved]
  - Asthenia [Not Recovered/Not Resolved]
  - Joint swelling [Unknown]
  - Plasma cell myeloma [Unknown]
